FAERS Safety Report 8084192-1 (Version None)
Quarter: 2012Q1

REPORT INFORMATION
  Report Type: 
  Country: None (occurrence: None)
  Receive Date: 20120128
  Receipt Date: 20110120
  Transmission Date: 20120608
  Serious: Yes (Hospitalization)
  Sender: FDA-Public Use
  Company Number: US-ABBOTT-11P-163-0699520-00

PATIENT
  Sex: Female
  Weight: 56.296 kg

DRUGS (2)
  1. PREDNISONE TAB [Concomitant]
     Indication: CROHN'S DISEASE
  2. HUMIRA [Suspect]
     Indication: CROHN'S DISEASE
     Dates: start: 20101201

REACTIONS (3)
  - VIRAL INFECTION [None]
  - DIARRHOEA [None]
  - VOMITING [None]
